FAERS Safety Report 8890309 (Version 1)
Quarter: 2012Q4

REPORT INFORMATION
  Report Type: 
  Country: CA (occurrence: CA)
  Receive Date: 20121106
  Receipt Date: 20121106
  Transmission Date: 20130627
  Serious: Yes (Hospitalization)
  Sender: FDA-Public Use
  Company Number: PHBS2000CA10276

PATIENT
  Age: 88 Year
  Sex: Male

DRUGS (3)
  1. EXELON [Suspect]
     Dosage: 1.5 mg, BID
     Dates: start: 20000912, end: 20001003
  2. EXELON [Suspect]
     Dosage: 3 mg, BID
     Dates: start: 20001020
  3. EXELON [Suspect]
     Dosage: 4.5 mg, BID

REACTIONS (3)
  - Hip fracture [Recovering/Resolving]
  - Agitation [Not Recovered/Not Resolved]
  - Depressed mood [Not Recovered/Not Resolved]
